FAERS Safety Report 13759273 (Version 3)
Quarter: 2017Q3

REPORT INFORMATION
  Report Type: Spontaneous
  Country: FR (occurrence: FR)
  Receive Date: 20170717
  Receipt Date: 20170725
  Transmission Date: 20171127
  Serious: Yes (Death, Other)
  Sender: FDA-Public Use
  Company Number: FR-TEVA-786165ROM

PATIENT
  Age: 31 Year
  Sex: Male

DRUGS (5)
  1. REMIFENTANIL [Suspect]
     Active Substance: REMIFENTANIL
     Indication: DRUG USE DISORDER
     Route: 065
  2. PARACETAMOL W/CODEINE [Suspect]
     Active Substance: ACETAMINOPHEN\CODEINE PHOSPHATE
     Indication: DRUG USE DISORDER
     Route: 065
  3. MIDAZOLAM [Suspect]
     Active Substance: MIDAZOLAM HYDROCHLORIDE
     Indication: DRUG USE DISORDER
     Route: 065
  4. FENTANYL. [Suspect]
     Active Substance: FENTANYL
     Indication: DRUG USE DISORDER
     Route: 065
  5. TRAMADOL. [Suspect]
     Active Substance: TRAMADOL
     Indication: DRUG USE DISORDER
     Route: 065

REACTIONS (3)
  - Drug abuse [Unknown]
  - Cardio-respiratory arrest [Fatal]
  - Toxicity to various agents [Fatal]
